FAERS Safety Report 4759032-6 (Version None)
Quarter: 2005Q3

REPORT INFORMATION
  Report Type: 
  Country: None (occurrence: None)
  Receive Date: 20050901
  Receipt Date: 20050830
  Transmission Date: 20060218
  Serious: Yes (Hospitalization)
  Sender: FDA-Public Use
  Company Number: US-GLAXOSMITHKLINE-A0572391A

PATIENT
  Sex: Male

DRUGS (10)
  1. PAXIL [Suspect]
     Indication: DRUG USE FOR UNKNOWN INDICATION
     Dosage: 80MG PER DAY
     Route: 048
  2. NEORAL [Concomitant]
  3. ASPIRIN [Concomitant]
  4. PREDNISONE TAB [Concomitant]
  5. LIPITOR [Concomitant]
  6. AMARYL [Concomitant]
  7. ACTOS [Concomitant]
  8. AMBIEN [Concomitant]
  9. CARDURA [Concomitant]
  10. COLACE [Concomitant]

REACTIONS (1)
  - PRESCRIBED OVERDOSE [None]
